FAERS Safety Report 6088356-8 (Version None)
Quarter: 2009Q1

REPORT INFORMATION
  Report Type: 
  Country: None (occurrence: None)
  Receive Date: 20090219
  Receipt Date: 20090212
  Transmission Date: 20090719
  Serious: Yes (Hospitalization)
  Sender: FDA-Public Use
  Company Number: 2009SP003439

PATIENT
  Age: 53 Year
  Sex: Male

DRUGS (9)
  1. NOXAFIL [Suspect]
     Indication: ANTIFUNGAL PROPHYLAXIS
     Dosage: 200 MG; TID; PO
     Route: 048
     Dates: start: 20081007, end: 20081017
  2. CYTARABINE [Concomitant]
  3. AMIKACIN [Concomitant]
  4. FLUDARABINE PHOSPHATE [Concomitant]
  5. AMBISOME [Concomitant]
  6. TARGOCID [Concomitant]
  7. TAZOCEL [Concomitant]
  8. ZAVEDOS [Concomitant]
  9. ZYVOXID [Concomitant]

REACTIONS (1)
  - CYTOLYTIC HEPATITIS [None]
